FAERS Safety Report 9531810 (Version 1)
Quarter: 2013Q3

REPORT INFORMATION
  Report Type: Spontaneous
  Country: US (occurrence: US)
  Receive Date: 20130918
  Receipt Date: 20130918
  Transmission Date: 20140515
  Serious: Yes (Hospitalization, Other)
  Sender: FDA-Public Use
  Company Number: US-SANOFI-AVENTIS-2013SA090483

PATIENT
  Age: 75 Year
  Sex: Male

DRUGS (5)
  1. LANTUS SOLOSTAR [Suspect]
     Indication: TYPE 2 DIABETES MELLITUS
     Route: 048
  2. LANTUS SOLOSTAR [Suspect]
     Indication: TYPE 2 DIABETES MELLITUS
     Dosage: 10-14 UNITS
     Route: 048
  3. GLIMEPIRIDE [Suspect]
     Route: 065
     Dates: end: 201303
  4. NOVOLOG [Concomitant]
  5. SOLOSTAR [Concomitant]

REACTIONS (6)
  - Joint injury [Unknown]
  - Gastric haemorrhage [Unknown]
  - Cardiac failure congestive [Unknown]
  - Blood glucose decreased [Unknown]
  - Urinary tract infection [Not Recovered/Not Resolved]
  - Incorrect product storage [Unknown]
